FAERS Safety Report 20653185 (Version 3)
Quarter: 2022Q2

REPORT INFORMATION
  Report Type: Spontaneous
  Country: FR (occurrence: FR)
  Receive Date: 20220330
  Receipt Date: 20220427
  Transmission Date: 20220721
  Serious: No
  Sender: FDA-Public Use
  Company Number: FR-009507513-2203FRA006452

PATIENT
  Sex: Male

DRUGS (1)
  1. SIVEXTRO [Suspect]
     Active Substance: TEDIZOLID PHOSPHATE
     Indication: Arthritis infective
     Dosage: UNK
     Route: 048

REACTIONS (2)
  - Off label use [Unknown]
  - Product availability issue [Unknown]
